FAERS Safety Report 4441106-0 (Version None)
Quarter: 2004Q3

REPORT INFORMATION
  Report Type: 
  Country: None (occurrence: None)
  Receive Date: 20040902
  Receipt Date: 20040902
  Transmission Date: 20050211
  Serious: Yes (Other)
  Sender: FDA-Public Use
  Company Number: None

PATIENT
  Sex: Female
  Weight: 68.0396 kg

DRUGS (2)
  1. CLOBEX [Suspect]
     Indication: PSORIASIS
     Dosage: TOPICIAL 1/DAY
     Dates: start: 20040806
  2. CLOBEX [Suspect]
     Indication: PSORIASIS
     Dosage: TOPICIAL 1/DAY
     Dates: start: 20040810

REACTIONS (1)
  - DIZZINESS [None]
